FAERS Safety Report 19509334 (Version 1)
Quarter: 2021Q3

REPORT INFORMATION
  Report Type: Spontaneous
  Country: US (occurrence: US)
  Receive Date: 20210709
  Receipt Date: 20210709
  Transmission Date: 20211014
  Serious: No
  Sender: FDA-Public Use
  Company Number: US-PRINSTON PHARMACEUTICAL INC.-2020PRN00355

PATIENT

DRUGS (2)
  1. LISINOPRIL. [Suspect]
     Active Substance: LISINOPRIL
     Dosage: UNK
     Dates: end: 202009
  2. LISINOPRIL. [Suspect]
     Active Substance: LISINOPRIL
     Dosage: UNK
     Dates: start: 202009

REACTIONS (2)
  - Allergic cough [Not Recovered/Not Resolved]
  - Reaction to excipient [Not Recovered/Not Resolved]

NARRATIVE: CASE EVENT DATE: 202009
